FAERS Safety Report 7421884-9 (Version None)
Quarter: 2011Q2

REPORT INFORMATION
  Report Type: 
  Country: None (occurrence: None)
  Receive Date: 20110418
  Receipt Date: 20110408
  Transmission Date: 20111010
  Serious: Yes (Hospitalization)
  Sender: FDA-Public Use
  Company Number: PHHO2011US06306

PATIENT
  Sex: Female
  Weight: 56.8 kg

DRUGS (3)
  1. BLINDED NO TREATMENT RECEIVED [Suspect]
     Indication: DEMENTIA ALZHEIMER'S TYPE
     Dosage: DOUBLE BLIND
     Route: 062
     Dates: start: 20100113
  2. EXELON [Suspect]
     Indication: DEMENTIA ALZHEIMER'S TYPE
     Dosage: DOUBLE BLIND
     Route: 062
     Dates: start: 20100113
  3. EXELON [Suspect]
     Indication: DEMENTIA ALZHEIMER'S TYPE
     Dosage: DOUBLE BLIND
     Route: 062
     Dates: start: 20100113

REACTIONS (2)
  - DISEASE PROGRESSION [None]
  - HIP FRACTURE [None]
